FAERS Safety Report 7328025-7 (Version None)
Quarter: 2011Q1

REPORT INFORMATION
  Report Type: 
  Country: None (occurrence: None)
  Receive Date: 20110223
  Receipt Date: 20110210
  Transmission Date: 20110831
  Serious: Yes (Death)
  Sender: FDA-Public Use
  Company Number: CRC-11-029

PATIENT
  Sex: Female

DRUGS (3)
  1. LORCET-HD [Suspect]
  2. ETHANOL [Suspect]
  3. SYNALGOS-DC CAP [Suspect]

REACTIONS (2)
  - MULTIPLE DRUG OVERDOSE INTENTIONAL [None]
  - COMPLETED SUICIDE [None]
